FAERS Safety Report 7086566-4 (Version None)
Quarter: 2010Q4

REPORT INFORMATION
  Report Type: 
  Country: None (occurrence: None)
  Receive Date: 20101105
  Receipt Date: 20101026
  Transmission Date: 20110411
  Serious: Yes (Other)
  Sender: FDA-Public Use
  Company Number: PHHY2010DE72516

PATIENT
  Sex: Male
  Weight: 78 kg

DRUGS (1)
  1. ZOMETA [Suspect]
     Indication: OSTEOLYSIS
     Dosage: 3 MG EVERY 4 WEEKS
     Route: 042
     Dates: start: 20100902, end: 20100930

REACTIONS (1)
  - OSTEONECROSIS OF JAW [None]
